FAERS Safety Report 8906329 (Version 1)
Quarter: 2012Q4

REPORT INFORMATION
  Report Type: Spontaneous
  Country: US (occurrence: None)
  Receive Date: 20121112
  Receipt Date: 20121112
  Transmission Date: 20130627
  Serious: Yes (Hospitalization)
  Sender: FDA-Public Use
  Company Number: None

PATIENT
  Age: 16 Year
  Sex: Male
  Weight: 46 kg

DRUGS (1)
  1. CEFEPIME [Suspect]
     Indication: PSEUDOMONAS INFECTION
     Route: 042
     Dates: start: 20120914, end: 20120927

REACTIONS (3)
  - Mental status changes [None]
  - Toxicity to various agents [None]
  - Renal impairment [None]
